FAERS Safety Report 7898936-2 (Version None)
Quarter: 2011Q4

REPORT INFORMATION
  Report Type: 
  Country: None (occurrence: None)
  Receive Date: 20111107
  Receipt Date: 20111028
  Transmission Date: 20120403
  Serious: Yes (Hospitalization, Other)
  Sender: FDA-Public Use
  Company Number: US-ASTELLAS-2011US007152

PATIENT
  Sex: Male
  Weight: 113 kg

DRUGS (8)
  1. LABETALOL HCL [Concomitant]
     Indication: PRODUCT USED FOR UNKNOWN INDICATION
     Dosage: UNK
     Route: 065
  2. MYFORTIC [Concomitant]
     Indication: PRODUCT USED FOR UNKNOWN INDICATION
     Dosage: 360 MG AM, 180 MG HS
     Route: 048
  3. MULTI-VITAMIN [Concomitant]
     Indication: PRODUCT USED FOR UNKNOWN INDICATION
     Dosage: 1 DF, UID/QD
     Route: 048
  4. AMEVIVE [Suspect]
     Dosage: 7.5 MG, DOSES X 2
     Route: 042
     Dates: start: 20101029, end: 20101031
  5. AMEVIVE [Suspect]
     Dosage: 15 MG, WEEKLY
     Route: 058
     Dates: start: 20101101
  6. AMEVIVE [Suspect]
     Indication: RENAL TRANSPLANT
     Dosage: 15 MG, MONTHLY
     Route: 058
     Dates: end: 20110223
  7. PROGRAF [Concomitant]
     Indication: RENAL TRANSPLANT
     Dosage: 5 MG, BID
     Route: 048
  8. AMLODIPINE [Concomitant]
     Indication: PRODUCT USED FOR UNKNOWN INDICATION
     Dosage: UNK
     Route: 065

REACTIONS (4)
  - HYPERLIPIDAEMIA [None]
  - CYTOMEGALOVIRUS VIRAEMIA [None]
  - CEREBRAL ISCHAEMIA [None]
  - TRANSIENT ISCHAEMIC ATTACK [None]
